FAERS Safety Report 8655312 (Version 3)
Quarter: 2015Q2

REPORT INFORMATION
  Report Type: Spontaneous
  Country: US (occurrence: US)
  Receive Date: 20120709
  Receipt Date: 20150601
  Transmission Date: 20150821
  Serious: Yes (Life-Threatening, Hospitalization, Other)
  Sender: FDA-Public Use
  Company Number: US-ASTRAZENECA-2012SE44622

PATIENT
  Age: 804 Month
  Sex: Female
  Weight: 66.7 kg

DRUGS (10)
  1. BABY ASPIRIN [Concomitant]
     Active Substance: ASPIRIN
     Indication: MYOCARDIAL INFARCTION
     Route: 048
  2. SOTALOL. [Concomitant]
     Active Substance: SOTALOL
     Indication: CEREBROVASCULAR ACCIDENT
     Route: 048
  3. LISINOPRIL. [Suspect]
     Active Substance: LISINOPRIL
     Indication: HYPERTENSION
     Route: 048
  4. OMEPRAZOLE. [Suspect]
     Active Substance: OMEPRAZOLE
     Indication: CEREBROVASCULAR ACCIDENT
     Route: 048
  5. BABY ASPIRIN [Concomitant]
     Active Substance: ASPIRIN
     Indication: CEREBROVASCULAR ACCIDENT
     Route: 048
  6. COUMADIN [Concomitant]
     Active Substance: WARFARIN SODIUM
     Indication: CEREBROVASCULAR ACCIDENT
     Route: 048
     Dates: start: 201002
  7. PAXIL [Concomitant]
     Active Substance: PAROXETINE HYDROCHLORIDE
     Indication: HYPERTENSION
     Route: 048
  8. CRESTOR [Suspect]
     Active Substance: ROSUVASTATIN CALCIUM
     Indication: MYOCARDIAL INFARCTION
     Route: 048
  9. CRESTOR [Suspect]
     Active Substance: ROSUVASTATIN CALCIUM
     Indication: CEREBROVASCULAR ACCIDENT
     Route: 048
  10. FOLIC ACID. [Concomitant]
     Active Substance: FOLIC ACID
     Route: 048

REACTIONS (10)
  - Cerebrovascular accident [Unknown]
  - Amnesia [Unknown]
  - Lung neoplasm malignant [Unknown]
  - Neoplasm malignant [Unknown]
  - Pericardial effusion [Unknown]
  - Cardiac arrest [Unknown]
  - Dysarthria [Unknown]
  - Haemorrhage [Unknown]
  - Hypertension [Unknown]
  - Myocardial infarction [Unknown]

NARRATIVE: CASE EVENT DATE: 201002
